FAERS Safety Report 9010578 (Version 1)
Quarter: 2013Q1

REPORT INFORMATION
  Report Type: Spontaneous
  Country: US (occurrence: US)
  Receive Date: 20130109
  Receipt Date: 20130109
  Transmission Date: 20140127
  Serious: Yes (Hospitalization, Other)
  Sender: FDA-Public Use
  Company Number: US-PFIZER INC-2013008909

PATIENT
  Age: 73 Year
  Sex: Female
  Weight: 64.4 kg

DRUGS (4)
  1. NEURONTIN [Suspect]
     Indication: NEURALGIA
     Dosage: 1600 MG, 4X/DAY
  2. CELEBREX [Suspect]
     Indication: ARTHRITIS
     Dosage: 500 MG, 3X/DAY
     Route: 048
     Dates: end: 201208
  3. CELEBREX [Suspect]
     Indication: BACK PAIN
  4. VITAMIN D [Concomitant]
     Dosage: UNK

REACTIONS (2)
  - Gastric haemorrhage [Unknown]
  - Pancreatitis [Unknown]
